FAERS Safety Report 9341811 (Version 2)
Quarter: 2013Q2

REPORT INFORMATION
  Report Type: Spontaneous
  Country: CA (occurrence: CA)
  Receive Date: 20130611
  Receipt Date: 20130620
  Transmission Date: 20140414
  Serious: Yes (Other)
  Sender: FDA-Public Use
  Company Number: CA-ROCHE-1235177

PATIENT
  Sex: Female

DRUGS (5)
  1. VALCYTE [Suspect]
     Indication: PRODUCT USED FOR UNKNOWN INDICATION
     Route: 065
     Dates: start: 20120112, end: 20120611
  2. VALCYTE [Suspect]
     Route: 065
  3. VALCYTE [Suspect]
     Route: 065
     Dates: start: 20121005, end: 20130503
  4. VALCYTE [Suspect]
     Route: 065
     Dates: start: 20130521, end: 201306
  5. VALCYTE [Suspect]
     Route: 065

REACTIONS (1)
  - Cytomegalovirus infection [Not Recovered/Not Resolved]
